FAERS Safety Report 8242271-X (Version None)
Quarter: 2012Q1

REPORT INFORMATION
  Report Type: 
  Country: None (occurrence: None)
  Receive Date: 20120329
  Receipt Date: 20120326
  Transmission Date: 20120608
  Serious: No
  Sender: FDA-Public Use
  Company Number: US-PFIZER INC-2012077781

PATIENT
  Sex: Female
  Weight: 61.224 kg

DRUGS (2)
  1. LIPITOR [Suspect]
     Indication: LOW DENSITY LIPOPROTEIN INCREASED
  2. LIPITOR [Suspect]
     Indication: BLOOD CHOLESTEROL INCREASED
     Dosage: 2 MG, DAILY
     Route: 048
     Dates: start: 20110101

REACTIONS (2)
  - INSOMNIA [None]
  - PAIN IN EXTREMITY [None]
